FAERS Safety Report 4756838-4 (Version None)
Quarter: 2005Q3

REPORT INFORMATION
  Report Type: 
  Country: None (occurrence: None)
  Receive Date: 20050830
  Receipt Date: 20050818
  Transmission Date: 20060218
  Serious: Yes (Death, Hospitalization)
  Sender: FDA-Public Use
  Company Number: AU-JNJFOC-20050804211

PATIENT
  Age: 52 Year
  Sex: Female

DRUGS (1)
  1. CAELYX [Suspect]
     Indication: OVARIAN CANCER
     Route: 042

REACTIONS (8)
  - BONE MARROW DEPRESSION [None]
  - BRONCHOPNEUMONIA [None]
  - DIARRHOEA [None]
  - DISEASE PROGRESSION [None]
  - NEUTROPENIA [None]
  - OVARIAN CANCER [None]
  - RESPIRATORY FAILURE [None]
  - SEPSIS [None]
